FAERS Safety Report 6385183-9 (Version None)
Quarter: 2009Q4

REPORT INFORMATION
  Report Type: 
  Country: None (occurrence: None)
  Receive Date: 20091002
  Receipt Date: 20081120
  Transmission Date: 20100525
  Serious: No
  Sender: FDA-Public Use
  Company Number: US-ASTRAZENECA-2005UW13242

PATIENT
  Age: 63 Year
  Sex: Female
  Weight: 59 kg

DRUGS (4)
  1. ARIMIDEX [Suspect]
     Indication: BREAST CANCER
     Route: 048
     Dates: start: 20050801
  2. SYNTHROID [Concomitant]
  3. CALCIUM [Concomitant]
  4. BONIVA [Concomitant]

REACTIONS (10)
  - ABDOMINAL DISCOMFORT [None]
  - ARTHRALGIA [None]
  - ARTHRITIS [None]
  - BONE DENSITY DECREASED [None]
  - DENTAL CARIES [None]
  - DRY MOUTH [None]
  - DRY SKIN [None]
  - JOINT STIFFNESS [None]
  - MYALGIA [None]
  - OSTEOPENIA [None]
